FAERS Safety Report 7409138-8 (Version None)
Quarter: 2011Q2

REPORT INFORMATION
  Report Type: 
  Country: None (occurrence: None)
  Receive Date: 20110412
  Receipt Date: 20110405
  Transmission Date: 20111010
  Serious: Yes (Hospitalization, Other)
  Sender: FDA-Public Use
  Company Number: US-ROCHE-764516

PATIENT
  Sex: Male
  Weight: 95.3 kg

DRUGS (2)
  1. XELODA [Suspect]
     Indication: GALLBLADDER CANCER
     Route: 048
     Dates: start: 20101006, end: 20110318
  2. GEMZAR [Suspect]
     Indication: GALLBLADDER CANCER
     Dosage: FREQUENCY: ^DAY 1 AND 8, ONCE EVERY 21^
     Route: 042
     Dates: start: 20110114

REACTIONS (2)
  - CARDIAC FAILURE CONGESTIVE [None]
  - DIASTOLIC DYSFUNCTION [None]
